FAERS Safety Report 6382447-X (Version None)
Quarter: 2009Q3

REPORT INFORMATION
  Report Type: 
  Country: None (occurrence: None)
  Receive Date: 20090928
  Receipt Date: 20090928
  Transmission Date: 20100115
  Serious: Yes (Hospitalization)
  Sender: FDA-Public Use
  Company Number: None

PATIENT
  Sex: Male
  Weight: 104.4 kg

DRUGS (1)
  1. TAXOTERE [Suspect]
     Dosage: 173 MG

REACTIONS (10)
  - ANORECTAL DISCOMFORT [None]
  - ANORECTAL DISORDER [None]
  - CALCULUS URETERIC [None]
  - HAEMOGLOBIN DECREASED [None]
  - HAEMORRHOIDAL HAEMORRHAGE [None]
  - NEPHROLITHIASIS [None]
  - NEUTROPHIL COUNT DECREASED [None]
  - OSTEOARTHRITIS [None]
  - SWELLING [None]
  - WHITE BLOOD CELL COUNT DECREASED [None]
